FAERS Safety Report 10237352 (Version 1)
Quarter: 2014Q2

REPORT INFORMATION
  Report Type: Spontaneous
  Country: US (occurrence: US)
  Receive Date: 20140613
  Receipt Date: 20140613
  Transmission Date: 20141212
  Serious: No
  Sender: FDA-Public Use
  Company Number: US-TEVA-487508USA

PATIENT
  Age: 53 Year
  Sex: Female

DRUGS (2)
  1. COPAXONE 40MG [Suspect]
     Indication: MULTIPLE SCLEROSIS
     Dates: start: 2014
  2. COPAXONE 40MG [Suspect]
     Dates: start: 20100312, end: 2014

REACTIONS (4)
  - Immediate post-injection reaction [Unknown]
  - Vomiting [Unknown]
  - Pruritus [Unknown]
  - Lip swelling [Unknown]
